FAERS Safety Report 9997651 (Version 2)
Quarter: 2014Q1

REPORT INFORMATION
  Report Type: Spontaneous
  Country: CH (occurrence: CH)
  Receive Date: 20140311
  Receipt Date: 20140311
  Transmission Date: 20141002
  Serious: Yes (Other)
  Sender: FDA-Public Use
  Company Number: PHHY2014CH023437

PATIENT
  Age: 66 Year
  Sex: Female

DRUGS (3)
  1. GLIVEC [Suspect]
     Indication: CHRONIC MYELOID LEUKAEMIA
     Dosage: 200 MG
     Dates: start: 2012
  2. GLIVEC [Suspect]
     Dosage: 400 MG PER DAY
     Dates: start: 201308
  3. VOLTAREN [Suspect]
     Indication: ARTHROPATHY
     Dosage: 50 TO 100 MG DAILY
     Route: 048

REACTIONS (1)
  - Pancreatic insufficiency [Not Recovered/Not Resolved]
